FAERS Safety Report 12302712 (Version 1)
Quarter: 2016Q2

REPORT INFORMATION
  Report Type: Spontaneous
  Country: CA (occurrence: CA)
  Receive Date: 20160425
  Receipt Date: 20160425
  Transmission Date: 20160815
  Serious: Yes (Other)
  Sender: FDA-Public Use
  Company Number: CA-009507513-1604CAN013243

PATIENT
  Age: 44 Year
  Sex: Male

DRUGS (2)
  1. TEMODAL [Suspect]
     Active Substance: TEMOZOLOMIDE
     Indication: ANAPLASTIC OLIGODENDROGLIOMA
     Dosage: 160 MG DAILY FOR 21 DAYS(EACH MONTH)
     Route: 048
     Dates: start: 2013
  2. TEMODAL [Suspect]
     Active Substance: TEMOZOLOMIDE
     Dosage: 440 MG DAILY FOR 5 DAYS, EACH MONTH
     Route: 048
     Dates: start: 201402

REACTIONS (2)
  - Anaplastic oligodendroglioma [Unknown]
  - Off label use [Unknown]

NARRATIVE: CASE EVENT DATE: 2013
